FAERS Safety Report 23316350 (Version 1)
Quarter: 2023Q4

REPORT INFORMATION
  Report Type: Spontaneous
  Country: US (occurrence: US)
  Receive Date: 20231219
  Receipt Date: 20231219
  Transmission Date: 20240110
  Serious: No
  Sender: FDA-Public Use
  Company Number: US-009507513-2312USA005470

PATIENT
  Age: 79 Year
  Sex: Male

DRUGS (2)
  1. INVANZ [Suspect]
     Active Substance: ERTAPENEM SODIUM
     Indication: Infection
     Dosage: 500 MILLIGRAM, QD
     Route: 042
     Dates: start: 20210609, end: 20210622
  2. CUBICIN [Concomitant]
     Active Substance: DAPTOMYCIN
     Indication: Infection
     Dosage: 675 MILLIGRAM, QD
     Route: 042
     Dates: start: 20210609, end: 20210622

REACTIONS (1)
  - Product use in unapproved indication [Unknown]

NARRATIVE: CASE EVENT DATE: 20210609
